FAERS Safety Report 12183933 (Version 1)
Quarter: 2016Q1

REPORT INFORMATION
  Report Type: Report from Study
  Country: IT (occurrence: IT)
  Receive Date: 20160316
  Receipt Date: 20160316
  Transmission Date: 20160526
  Serious: Yes (Death)
  Sender: FDA-Public Use
  Company Number: IT-ASTELLAS-2015US033160

PATIENT
  Age: 1 Month
  Sex: Male
  Weight: 1 kg

DRUGS (18)
  1. CEFTAZIDIMA [Concomitant]
     Active Substance: CEFTAZIDIME
     Indication: ANTIBIOTIC THERAPY
     Route: 042
     Dates: start: 20150823, end: 20150905
  2. VITAMINA K                         /00032401/ [Concomitant]
     Indication: PROPHYLAXIS
     Dosage: 0.5 MG, ONCE WEEKLY
     Route: 042
     Dates: start: 20150722
  3. ULTIVA [Concomitant]
     Active Substance: REMIFENTANIL HYDROCHLORIDE
     Indication: SEDATION
     Dosage: 0.3 MG, ONCE DAILY
     Route: 030
     Dates: start: 20150729
  4. MICAFUNGIN [Suspect]
     Active Substance: MICAFUNGIN
     Indication: FUNGAL INFECTION
     Dosage: 8 MG/KG, ONCE DAILY
     Route: 042
     Dates: start: 20150826, end: 20150911
  5. COLIMICINA                         /00013203/ [Concomitant]
     Active Substance: COLISTIN SULFATE
     Indication: ANTIBIOTIC THERAPY
     Dosage: 2500 UNK, ONCE DAILY
     Route: 042
     Dates: start: 20150825
  6. OMEPRAZOLO [Concomitant]
     Active Substance: OMEPRAZOLE
     Indication: GASTRITIS PROPHYLAXIS
     Route: 042
     Dates: start: 20150817
  7. MEROPENEM. [Concomitant]
     Active Substance: MEROPENEM
     Indication: INFECTION
     Dosage: 30 UNK, THRICE DAILY
     Route: 042
     Dates: start: 20150909
  8. BETAMETASONE [Concomitant]
     Active Substance: BETAMETHASONE
     Indication: PRODUCT USED FOR UNKNOWN INDICATION
     Dosage: 0.25 MG, ONCE DAILY
     Route: 042
     Dates: start: 20150907
  9. BOSENTAN [Concomitant]
     Active Substance: BOSENTAN
     Indication: PULMONARY HYPERTENSION
     Route: 048
     Dates: start: 20150909
  10. PENTAGLOBIN [Concomitant]
     Indication: SEPSIS
     Route: 042
     Dates: start: 20150824
  11. DOPAMINA [Concomitant]
     Indication: SHOCK
     Route: 042
     Dates: start: 20150909
  12. VASOPRESSINA [Concomitant]
     Indication: HYPOTENSION
     Dosage: 0.6 UNK, UNKNOWN FREQ.
     Route: 042
     Dates: start: 20150909
  13. FUROSEMIDE. [Concomitant]
     Active Substance: FUROSEMIDE
     Indication: OLIGURIA
     Route: 042
     Dates: start: 20150812
  14. MILRINONE [Concomitant]
     Active Substance: MILRINONE
     Indication: CARDIAC FAILURE
     Route: 042
     Dates: start: 20150909
  15. SILDENAFIL. [Concomitant]
     Active Substance: SILDENAFIL
     Indication: PULMONARY HYPERTENSION
     Dosage: 1 MG, 6 TIMES DAILY
     Route: 048
     Dates: start: 20150828
  16. ETHACRYNIC ACID [Concomitant]
     Active Substance: ETHACRYNIC ACID
     Indication: OLIGURIA
     Dosage: 6 UNK
     Route: 042
     Dates: start: 20150910
  17. CAFFEINE                           /00060502/ [Concomitant]
     Indication: PREMATURE BABY
     Route: 042
     Dates: start: 20150811
  18. MIDAZOLAM [Concomitant]
     Active Substance: MIDAZOLAM\MIDAZOLAM HYDROCHLORIDE
     Indication: SEDATION
     Route: 042
     Dates: start: 20150729

REACTIONS (1)
  - Death [Fatal]

NARRATIVE: CASE EVENT DATE: 20150912
